FAERS Safety Report 14978186 (Version 1)
Quarter: 2018Q2

REPORT INFORMATION
  Report Type: Spontaneous
  Country: US (occurrence: US)
  Receive Date: 20180606
  Receipt Date: 20180606
  Transmission Date: 20180711
  Serious: No
  Sender: FDA-Public Use
  Company Number: US-SA-2018SA143612

PATIENT

DRUGS (1)
  1. KEVZARA [Suspect]
     Active Substance: SARILUMAB
     Dosage: 150 MG

REACTIONS (3)
  - White blood cell disorder [Unknown]
  - Hepatic enzyme increased [Unknown]
  - Product use issue [Unknown]
